FAERS Safety Report 7936413-0 (Version None)
Quarter: 2011Q4

REPORT INFORMATION
  Report Type: 
  Country: None (occurrence: None)
  Receive Date: 20111123
  Receipt Date: 20111117
  Transmission Date: 20120403
  Serious: Yes (Hospitalization)
  Sender: FDA-Public Use
  Company Number: AU-PFIZER INC-2011265678

PATIENT
  Age: 63 Year
  Sex: Female
  Weight: 67 kg

DRUGS (9)
  1. FLUOROURACIL [Suspect]
     Dosage: 2400 MG/M2, CYCLIC (ON DAY 1 AND 2 EVERY 14 DAYS)
     Dates: start: 20110802, end: 20110927
  2. BLINDED THERAPY [Suspect]
     Indication: COLORECTAL CANCER METASTATIC
     Dosage: UNK, CYCLIC (EVERY 14 DAYS)
     Dates: start: 20110802, end: 20110927
  3. LEUCOVORIN CALCIUM [Suspect]
     Indication: COLORECTAL CANCER METASTATIC
     Dosage: 400 MG/M2, CYCLIC (ON DAY 1 EVERY 14 DAYS)
     Dates: start: 20110802, end: 20110927
  4. FENTANYL [Concomitant]
     Indication: PAIN
     Dosage: UNK
  5. FLUOROURACIL [Suspect]
     Indication: COLORECTAL CANCER METASTATIC
     Dosage: 400 MG/M2, CYCLIC (ON DAY 1 EVERY 14 DAYS)
     Dates: start: 20110802, end: 20110927
  6. HALOPERIDOL [Concomitant]
     Indication: INSOMNIA
     Dosage: UNK
  7. IRINOTECAN HCL [Suspect]
     Indication: COLORECTAL CANCER METASTATIC
     Dosage: 180 MG/M2, CYCLIC (ON DAY 1 EVERY 14 DAYS)
     Dates: start: 20110802, end: 20110927
  8. PARACETAMOL [Concomitant]
     Indication: PAIN
     Dosage: UNK
  9. METOCLOPRAMIDE HYDROCHLORIDE [Concomitant]
     Indication: NAUSEA
     Dosage: UNK
     Dates: end: 20111011

REACTIONS (2)
  - POSTERIOR REVERSIBLE ENCEPHALOPATHY SYNDROME [None]
  - CONFUSIONAL STATE [None]
